FAERS Safety Report 9096290 (Version 1)
Quarter: 2013Q1

REPORT INFORMATION
  Report Type: Spontaneous
  Country: US (occurrence: US)
  Receive Date: 20130207
  Receipt Date: 20130207
  Transmission Date: 20140127
  Serious: Yes (Hospitalization, Other)
  Sender: FDA-Public Use
  Company Number: US-ABBOTT-13P-163-1044088-00

PATIENT
  Age: 41 Year
  Sex: Female

DRUGS (7)
  1. DEPAKOTE ER [Suspect]
     Indication: CONVULSION
     Dosage: 6 TABLETS IN AM AND 5 AT BEDTIME
     Dates: end: 20120427
  2. KEPPRA [Suspect]
     Indication: CONVULSION
     Dates: start: 201204
  3. LISINOPRIL [Concomitant]
     Indication: HYPERTENSION
  4. HUMULIN R INSULIN [Concomitant]
     Indication: DIABETES MELLITUS
  5. HUMULIN N INSULIN [Concomitant]
     Indication: DIABETES MELLITUS
  6. LO ESTROGEN [Concomitant]
     Indication: CONTRACEPTION
  7. FEXOFENADINE [Concomitant]
     Indication: HYPERSENSITIVITY

REACTIONS (4)
  - Renal failure acute [Recovered/Resolved]
  - Thrombocytopenia [Recovered/Resolved]
  - Liver function test abnormal [Recovered/Resolved]
  - Convulsion [Not Recovered/Not Resolved]
